FAERS Safety Report 14023805 (Version 1)
Quarter: 2017Q3

REPORT INFORMATION
  Report Type: Spontaneous
  Country: US (occurrence: US)
  Receive Date: 20170929
  Receipt Date: 20170929
  Transmission Date: 20171128
  Serious: No
  Sender: FDA-Public Use
  Company Number: US-JUBILANT CADISTA PHARMACEUTICALS-2017JUB00017

PATIENT
  Sex: Female
  Weight: 98.41 kg

DRUGS (8)
  1. PREDNISONE. [Suspect]
     Active Substance: PREDNISONE
     Indication: FIBROMYALGIA
     Dosage: 2.5 MG, 1X/DAY
     Route: 048
     Dates: start: 20170111
  2. CELECOXIB. [Concomitant]
     Active Substance: CELECOXIB
  3. BUPROPION. [Concomitant]
     Active Substance: BUPROPION
  4. PREDNISONE. [Suspect]
     Active Substance: PREDNISONE
     Indication: FIBROMYALGIA
     Dosage: 20 MG, 1X/DAY
     Route: 048
     Dates: start: 20161221
  5. METOPROLOL. [Concomitant]
     Active Substance: METOPROLOL
  6. FLUOXETINE [Concomitant]
     Active Substance: FLUOXETINE HYDROCHLORIDE
  7. ZOLPIDEM [Concomitant]
     Active Substance: ZOLPIDEM\ZOLPIDEM TARTRATE
  8. GENERIC PERCOCET [Concomitant]
     Active Substance: ACETAMINOPHEN\OXYCODONE HYDROCHLORIDE

REACTIONS (2)
  - Abdominal distension [Unknown]
  - Abdominal pain [Unknown]
